FAERS Safety Report 8303739-0 (Version None)
Quarter: 2012Q2

REPORT INFORMATION
  Report Type: 
  Country: None (occurrence: None)
  Receive Date: 20120423
  Receipt Date: 20120410
  Transmission Date: 20120825
  Serious: Yes (Other)
  Sender: FDA-Public Use
  Company Number: US-SANOFI-AVENTIS-2012SA025173

PATIENT
  Age: 84 Year
  Sex: Female
  Weight: 83 kg

DRUGS (2)
  1. PLAVIX [Suspect]
     Indication: STENT PLACEMENT
     Route: 048
  2. PLAVIX [Suspect]
     Route: 048
     Dates: start: 20111001, end: 20120401

REACTIONS (6)
  - NASOPHARYNGITIS [None]
  - MYOCARDIAL INFARCTION [None]
  - OROPHARYNGEAL PAIN [None]
  - ARTHROPATHY [None]
  - COUGH [None]
  - BODY HEIGHT DECREASED [None]
